FAERS Safety Report 9640778 (Version 1)
Quarter: 2013Q4

REPORT INFORMATION
  Report Type: Report from Study
  Country: US (occurrence: US)
  Receive Date: 20131023
  Receipt Date: 20131023
  Transmission Date: 20140711
  Serious: No
  Sender: FDA-Public Use
  Company Number: US-ABBVIE-13P-163-1128900-00

PATIENT
  Age: 33 Year
  Sex: Female

DRUGS (1)
  1. LUPRON DEPOT [Suspect]
     Indication: ENDOMETRIOSIS
     Dates: start: 201305

REACTIONS (11)
  - Back pain [Recovered/Resolved]
  - Abasia [Recovered/Resolved]
  - Muscle spasms [Recovered/Resolved]
  - Hot flush [Not Recovered/Not Resolved]
  - Irritability [Recovered/Resolved]
  - Weight decreased [Unknown]
  - Therapeutic response unexpected [Unknown]
  - Metrorrhagia [Recovered/Resolved]
  - Thrombosis [Recovered/Resolved]
  - Abdominal discomfort [Recovered/Resolved]
  - Biopsy cervix abnormal [Not Recovered/Not Resolved]
